FAERS Safety Report 7474998-1 (Version None)
Quarter: 2011Q2

REPORT INFORMATION
  Report Type: 
  Country: None (occurrence: None)
  Receive Date: 20110509
  Receipt Date: 20110509
  Transmission Date: 20111010
  Serious: No
  Sender: FDA-Public Use
  Company Number: None

PATIENT
  Age: 54 Year
  Sex: Female
  Weight: 81.6475 kg

DRUGS (3)
  1. ENBREL [Suspect]
     Indication: LYME DISEASE
     Dosage: MONTHLY
  2. CORTIZONE 10MLG [Suspect]
     Indication: RHEUMATOID ARTHRITIS
     Dosage: 10MLG
  3. PREDNISONE [Suspect]
     Indication: RHEUMATOID ARTHRITIS
     Dosage: 10MLG

REACTIONS (2)
  - ALOPECIA [None]
  - DERMATITIS ALLERGIC [None]
